FAERS Safety Report 5782777-6 (Version None)
Quarter: 2008Q2

REPORT INFORMATION
  Report Type: 
  Country: None (occurrence: None)
  Receive Date: 20080624
  Receipt Date: 20080228
  Transmission Date: 20081010
  Serious: No
  Sender: FDA-Public Use
  Company Number: US-BAYER-200815867NA

PATIENT
  Age: 44 Year
  Sex: Female

DRUGS (1)
  1. CLIMARA [Suspect]
     Indication: MENOPAUSAL SYMPTOMS
     Dosage: TOTAL DAILY DOSE: 0.0375 MG  UNIT DOSE: 0.037 MG
     Route: 062
     Dates: start: 20060101

REACTIONS (3)
  - HEADACHE [None]
  - HOT FLUSH [None]
  - PHARMACEUTICAL PRODUCT COMPLAINT [None]
